FAERS Safety Report 9433386 (Version 1)
Quarter: 2013Q3

REPORT INFORMATION
  Report Type: Spontaneous
  Country: US (occurrence: US)
  Receive Date: 20130731
  Receipt Date: 20130731
  Transmission Date: 20140515
  Serious: Yes (Other)
  Sender: FDA-Public Use
  Company Number: CHPA2013US011632

PATIENT
  Age: 46 Year
  Sex: Female

DRUGS (2)
  1. PERDIEM OVERNIGHT RELIEF PILLS [Suspect]
     Indication: FAECES HARD
     Dosage: 1 DF, BID
     Route: 048
  2. PERDIEM FIBER [Suspect]
     Indication: FAECES HARD
     Dosage: 1 TSP, QD
     Route: 065

REACTIONS (7)
  - Rectal haemorrhage [Recovered/Resolved]
  - Rectal fissure [Recovered/Resolved]
  - Post procedural complication [Unknown]
  - Off label use [Unknown]
  - Incorrect drug administration duration [Unknown]
  - Therapeutic response unexpected [Unknown]
  - Underdose [Unknown]
